FAERS Safety Report 14309420 (Version 6)
Quarter: 2018Q3

REPORT INFORMATION
  Report Type: Spontaneous
  Country: IT (occurrence: IT)
  Receive Date: 20171220
  Receipt Date: 20180705
  Transmission Date: 20181010
  Serious: Yes (Hospitalization)
  Sender: FDA-Public Use
  Company Number: IT-TEVA-2017-IT-837780

PATIENT
  Age: 60 Year
  Sex: Female
  Weight: 48 kg

DRUGS (3)
  1. AVASTIN [Suspect]
     Active Substance: BEVACIZUMAB
     Indication: CERVIX CARCINOMA
     Dosage: 1 X 400 MG VIAL, CONCENTRATE FOR SOLUTION FOR INTRAVENOUS INFUSION
     Route: 042
     Dates: start: 20170131, end: 20170515
  2. PACLITAXEL TEVA 6 MG/ML [Suspect]
     Active Substance: PACLITAXEL
     Indication: CERVIX CARCINOMA
     Dosage: 6 MG/ML 16.7 ML VIAL
     Route: 042
     Dates: start: 20170131, end: 20170515
  3. CISPLATINO TEVA ITALIA 1 MG/ML [Suspect]
     Active Substance: CISPLATIN
     Indication: CERVIX CARCINOMA
     Dosage: 1 MG/ML 1 X 100 ML GLASS VIAL
     Route: 042
     Dates: start: 20170131, end: 20170515

REACTIONS (2)
  - Peritonitis [Unknown]
  - Large intestine perforation [Unknown]

NARRATIVE: CASE EVENT DATE: 20170531
